FAERS Safety Report 12182963 (Version 1)
Quarter: 2016Q1

REPORT INFORMATION
  Report Type: Spontaneous
  Country: US (occurrence: US)
  Receive Date: 20160316
  Receipt Date: 20160316
  Transmission Date: 20160526
  Serious: Yes (Other)
  Sender: FDA-Public Use
  Company Number: US-DRREDDYS-USA/USA/16/0077814

PATIENT

DRUGS (1)
  1. GEMCITABINE [Suspect]
     Active Substance: GEMCITABINE\GEMCITABINE HYDROCHLORIDE
     Indication: NEOPLASM
     Dosage: RECEIVED 28-DAY CYCLES OF GEMCITABINE ON DAYS 1, 8, 15
     Route: 065

REACTIONS (2)
  - Toxicity to various agents [Unknown]
  - Urinary tract infection [Unknown]
